FAERS Safety Report 8064878-5 (Version None)
Quarter: 2012Q1

REPORT INFORMATION
  Report Type: 
  Country: None (occurrence: None)
  Receive Date: 20120124
  Receipt Date: 20120112
  Transmission Date: 20120608
  Serious: No
  Sender: FDA-Public Use
  Company Number: US-BIOGENIDEC-2012BI001496

PATIENT
  Age: 62 Year
  Sex: Female

DRUGS (3)
  1. TYSABRI [Suspect]
     Route: 042
     Dates: start: 20090610, end: 20110809
  2. TYSABRI [Suspect]
     Route: 042
     Dates: start: 20111213
  3. TYSABRI [Suspect]
     Indication: MULTIPLE SCLEROSIS
     Route: 042
     Dates: start: 20060101, end: 20060201

REACTIONS (3)
  - ARTHRITIS [None]
  - STRESS [None]
  - MULTIPLE SCLEROSIS [None]
